FAERS Safety Report 4454122-X (Version None)
Quarter: 2004Q3

REPORT INFORMATION
  Report Type: 
  Country: None (occurrence: None)
  Receive Date: 20040826
  Receipt Date: 20040509
  Transmission Date: 20050211
  Serious: No
  Sender: FDA-Public Use
  Company Number: WAES 0405USA00602

PATIENT
  Age: 60 Year
  Sex: Male
  Weight: 107.0489 kg

DRUGS (8)
  1. ZETIA [Suspect]
     Indication: HYPERCHOLESTEROLAEMIA
     Dosage: 10 MG/DAILY/PO
     Route: 048
  2. ALTACE [Concomitant]
  3. FOLTX [Concomitant]
  4. PLAVIX [Concomitant]
  5. THERAGAN TABLETS ADVANCED FORM [Concomitant]
  6. ASPIRIN [Concomitant]
  7. ATENOLOL [Concomitant]
  8. FISH OIL (UNSPECIFIED) [Concomitant]

REACTIONS (4)
  - NERVOUSNESS [None]
  - RASH [None]
  - TREMOR [None]
  - URTICARIA [None]
